FAERS Safety Report 6200938-9 (Version None)
Quarter: 2009Q2

REPORT INFORMATION
  Report Type: 
  Country: None (occurrence: None)
  Receive Date: 20090523
  Receipt Date: 20081113
  Transmission Date: 20091009
  Serious: No
  Sender: FDA-Public Use
  Company Number: US-ALEXION-A200800345

PATIENT
  Sex: Male

DRUGS (7)
  1. SOLIRIS [Suspect]
     Indication: PAROXYSMAL NOCTURNAL HAEMOGLOBINURIA
     Dosage: 600 MG, SINGLE
     Route: 042
     Dates: start: 20071213
  2. SOLIRIS [Suspect]
     Dosage: 900 MG, SINGLE
     Route: 042
     Dates: start: 20080110
  3. COUMADIN [Concomitant]
     Route: 048
  4. FOLIC ACID [Concomitant]
     Route: 048
  5. IRON [Concomitant]
     Route: 048
  6. OXYCONTIN [Concomitant]
     Route: 048
  7. PREDNISONE [Concomitant]
     Dosage: UNK, UNK
     Route: 048

REACTIONS (1)
  - OEDEMA PERIPHERAL [None]
